FAERS Safety Report 6868286-1 (Version None)
Quarter: 2010Q3

REPORT INFORMATION
  Report Type: 
  Country: None (occurrence: None)
  Receive Date: 20100722
  Receipt Date: 20080705
  Transmission Date: 20110219
  Serious: Yes (Other)
  Sender: FDA-Public Use
  Company Number: US-PFIZER INC-2008044173

PATIENT
  Sex: Male
  Weight: 88.6 kg

DRUGS (1)
  1. CHANTIX [Suspect]
     Indication: SMOKING CESSATION THERAPY
     Dates: start: 20080406, end: 20080518

REACTIONS (9)
  - DEPRESSION [None]
  - GAIT DISTURBANCE [None]
  - HYPERHIDROSIS [None]
  - NAUSEA [None]
  - PERSONALITY CHANGE [None]
  - PSYCHOTIC DISORDER [None]
  - TOBACCO USER [None]
  - TREMOR [None]
  - VOMITING [None]
